FAERS Safety Report 16285666 (Version 3)
Quarter: 2019Q3

REPORT INFORMATION
  Report Type: Spontaneous
  Country: US (occurrence: US)
  Receive Date: 20190508
  Receipt Date: 20190731
  Transmission Date: 20191004
  Serious: No
  Sender: FDA-Public Use
  Company Number: US-BAUSCH-BL-2019-012846

PATIENT
  Age: 75 Year
  Sex: Female
  Weight: 54.48 kg

DRUGS (3)
  1. XIFAXAN [Suspect]
     Active Substance: RIFAXIMIN
     Indication: GASTROINTESTINAL BACTERIAL OVERGROWTH
     Route: 048
     Dates: start: 201904
  2. XIFAXAN [Suspect]
     Active Substance: RIFAXIMIN
     Indication: PRODUCT USE IN UNAPPROVED INDICATION
  3. NEOMYCIN. [Concomitant]
     Active Substance: NEOMYCIN
     Indication: PRODUCT USED FOR UNKNOWN INDICATION

REACTIONS (6)
  - Product use complaint [Unknown]
  - Malaise [Unknown]
  - Wrong technique in product usage process [Unknown]
  - Dizziness [Recovered/Resolved]
  - Product use in unapproved indication [Unknown]
  - Product size issue [Unknown]

NARRATIVE: CASE EVENT DATE: 2019
